FAERS Safety Report 5488121-6 (Version None)
Quarter: 2007Q4

REPORT INFORMATION
  Report Type: 
  Country: None (occurrence: None)
  Receive Date: 20071005
  Receipt Date: 20060822
  Transmission Date: 20080405
  Serious: Yes (Other)
  Sender: FDA-Public Use
  Company Number: PHEH2006US10776

PATIENT
  Sex: Female

DRUGS (5)
  1. LOPRESSOR [Suspect]
     Indication: HYPERTENSION
     Dosage: 100 MG, BID
     Dates: start: 20020101
  2. LOTREL [Suspect]
     Indication: HYPERTENSION
     Dosage: 10/20 MG QD, ORAL
     Route: 048
     Dates: start: 20050101
  3. METHADONE HCL [Concomitant]
  4. AMBIEN [Concomitant]
  5. VICODIN ES [Concomitant]

REACTIONS (3)
  - DRUG INEFFECTIVE [None]
  - HYPERTENSION [None]
  - OEDEMA PERIPHERAL [None]
